FAERS Safety Report 19207719 (Version 2)
Quarter: 2023Q1

REPORT INFORMATION
  Report Type: Spontaneous
  Country: US (occurrence: US)
  Receive Date: 20210503
  Receipt Date: 20230323
  Transmission Date: 20230417
  Serious: Yes (Other)
  Sender: FDA-Public Use
  Company Number: US-PFIZER INC-2021195109

PATIENT
  Age: 73 Year
  Sex: Female
  Weight: 54.43 kg

DRUGS (5)
  1. IBRANCE [Suspect]
     Active Substance: PALBOCICLIB
     Indication: Breast cancer stage IV
     Dosage: 100 MG, CYCLIC (ONE DAILY FOR 21 DAYS AND 7 DAYS OFF)
     Route: 048
     Dates: start: 202007
  2. IBRANCE [Suspect]
     Active Substance: PALBOCICLIB
     Indication: Breast cancer metastatic
     Dosage: 100 MG
     Route: 048
     Dates: start: 2020
  3. BUPROPION HYDROCHLORIDE [Concomitant]
     Active Substance: BUPROPION HYDROCHLORIDE
     Dosage: 100 MG
  4. LEVOTHYROXINE [Concomitant]
     Active Substance: LEVOTHYROXINE
     Dosage: 75 UG
  5. ADVIL [Concomitant]
     Active Substance: IBUPROFEN
     Dosage: UNK, (OCCASIONALLY)

REACTIONS (10)
  - Cataract [Unknown]
  - Second primary malignancy [Unknown]
  - Squamous cell carcinoma [Unknown]
  - Lacrimation increased [Not Recovered/Not Resolved]
  - Sneezing [Not Recovered/Not Resolved]
  - Fatigue [Not Recovered/Not Resolved]
  - Eczema [Recovering/Resolving]
  - Dry eye [Unknown]
  - Sinus disorder [Unknown]
  - Tooth extraction [Unknown]

NARRATIVE: CASE EVENT DATE: 20201101
